FAERS Safety Report 8936803 (Version 1)
Quarter: 2012Q4

REPORT INFORMATION
  Report Type: 
  Country: US (occurrence: US)
  Receive Date: 20121130
  Receipt Date: 20121130
  Transmission Date: 20130627
  Serious: No
  Sender: FDA-Public Use
  Company Number: US-PFIZER INC-2012300637

PATIENT
  Age: 54 Year
  Sex: Female
  Weight: 53.97 kg

DRUGS (1)
  1. LYRICA [Suspect]
     Indication: FIBROMYALGIA
     Dosage: 100 mg, 3x/day
     Dates: start: 201211

REACTIONS (1)
  - Paraesthesia [Not Recovered/Not Resolved]
